FAERS Safety Report 4947038-3 (Version None)
Quarter: 2006Q1

REPORT INFORMATION
  Report Type: 
  Country: None (occurrence: None)
  Receive Date: 20060317
  Receipt Date: 20060315
  Transmission Date: 20060701
  Serious: Yes (Hospitalization)
  Sender: FDA-Public Use
  Company Number: JP-BRISTOL-MYERS SQUIBB COMPANY-13316385

PATIENT
  Age: 84 Year
  Sex: Female

DRUGS (2)
  1. TAXOL [Suspect]
     Indication: BREAST CANCER
     Route: 042
     Dates: start: 20060104, end: 20060118
  2. TRASTUZUMAB [Concomitant]
     Route: 042
     Dates: start: 20051101

REACTIONS (1)
  - GASTROINTESTINAL NECROSIS [None]
